FAERS Safety Report 17641495 (Version 1)
Quarter: 2020Q2

REPORT INFORMATION
  Report Type: Spontaneous
  Country: IR (occurrence: IR)
  Receive Date: 20200407
  Receipt Date: 20200407
  Transmission Date: 20200713
  Serious: Yes (Other)
  Sender: FDA-Public Use
  Company Number: IR-FRESENIUS KABI-FK202003484

PATIENT
  Age: 7 Day
  Sex: Female

DRUGS (3)
  1. LIDOCAINE 1% (MANUFACTURER UNKNOWN) [Suspect]
     Active Substance: LIDOCAINE HYDROCHLORIDE
     Indication: NERVE BLOCK
     Route: 065
  2. HEPARIN [Concomitant]
     Active Substance: HEPARIN SODIUM
     Indication: ANTICOAGULANT THERAPY
     Dosage: 20 IU
     Route: 040
  3. HEPARIN [Concomitant]
     Active Substance: HEPARIN SODIUM
     Dosage: 20 IU
     Route: 042

REACTIONS (2)
  - Horner^s syndrome [Unknown]
  - Flushing [Unknown]
